FAERS Safety Report 17909817 (Version 7)
Quarter: 2025Q2

REPORT INFORMATION
  Report Type: Report from Study
  Country: US (occurrence: US)
  Receive Date: 20200618
  Receipt Date: 20250411
  Transmission Date: 20250717
  Serious: Yes (Other)
  Sender: TAKEDA
  Company Number: US-SHIRE-US202019914

PATIENT
  Age: 69 Year
  Sex: Male
  Weight: 95 kg

DRUGS (22)
  1. HUMAN IMMUNOGLOBULIN G [Suspect]
     Active Substance: HUMAN IMMUNOGLOBULIN G
     Indication: Immunodeficiency common variable
     Dosage: 50 GRAM, Q3WEEKS
     Dates: start: 20150731
  2. HUMAN IMMUNOGLOBULIN G [Suspect]
     Active Substance: HUMAN IMMUNOGLOBULIN G
     Dosage: 60 GRAM, Q3WEEKS
     Dates: start: 20150801
  3. HUMAN IMMUNOGLOBULIN G [Suspect]
     Active Substance: HUMAN IMMUNOGLOBULIN G
  4. EPINEPHRINE [Concomitant]
     Active Substance: EPINEPHRINE
  5. ACETAMINOPHEN [Concomitant]
     Active Substance: ACETAMINOPHEN
  6. DEXAMETHASONE [Concomitant]
     Active Substance: DEXAMETHASONE
  7. SODIUM CHLORIDE [Concomitant]
     Active Substance: SODIUM CHLORIDE
  8. PHENELZINE SULFATE [Concomitant]
     Active Substance: PHENELZINE SULFATE
  9. CLONAZEPAM [Concomitant]
     Active Substance: CLONAZEPAM
  10. ASPIRIN [Concomitant]
     Active Substance: ASPIRIN
  11. HEPARIN [Concomitant]
     Active Substance: HEPARIN SODIUM
  12. ALBUTEROL SULFATE [Concomitant]
     Active Substance: ALBUTEROL SULFATE
  13. PREDNISONE [Concomitant]
     Active Substance: PREDNISONE
  14. DIPHENHYDRAMINE HYDROCHLORIDE [Concomitant]
     Active Substance: DIPHENHYDRAMINE HYDROCHLORIDE
  15. CYPROHEPTADINE HYDROCHLORIDE [Concomitant]
     Active Substance: CYPROHEPTADINE HYDROCHLORIDE
  16. BENADRYL ALLERGY [Concomitant]
     Active Substance: DIPHENHYDRAMINE HYDROCHLORIDE
  17. DIPHENHYDRAMINE [Concomitant]
     Active Substance: DIPHENHYDRAMINE
  18. SODIUM CHLORIDE [Concomitant]
     Active Substance: SODIUM CHLORIDE
  19. SOLU-MEDROL [Concomitant]
     Active Substance: METHYLPREDNISOLONE SODIUM SUCCINATE
  20. CORTEF [Concomitant]
     Active Substance: HYDROCORTISONE
  21. METHYLPREDNISOLONE [Concomitant]
     Active Substance: METHYLPREDNISOLONE
  22. FEBUXOSTAT [Concomitant]
     Active Substance: FEBUXOSTAT

REACTIONS (21)
  - Pneumonitis [Unknown]
  - Incorrect drug administration rate [Unknown]
  - Infusion site pruritus [Unknown]
  - Chronic obstructive pulmonary disease [Unknown]
  - COVID-19 [Unknown]
  - Seasonal allergy [Unknown]
  - Multiple allergies [Unknown]
  - Infusion related reaction [Unknown]
  - Accident [Unknown]
  - Sinusitis [Unknown]
  - Oxygen saturation decreased [Unknown]
  - Blood pressure increased [Unknown]
  - Pain [Unknown]
  - Pain in extremity [Unknown]
  - Dyspnoea [Unknown]
  - Headache [Recovered/Resolved]
  - Migraine [Unknown]
  - Arthralgia [Unknown]
  - Pruritus [Unknown]
  - Nausea [Unknown]
  - Urticaria [Unknown]

NARRATIVE: CASE EVENT DATE: 20220125
